FAERS Safety Report 6326698-9 (Version None)
Quarter: 2009Q3

REPORT INFORMATION
  Report Type: 
  Country: None (occurrence: None)
  Receive Date: 20090825
  Receipt Date: 20090813
  Transmission Date: 20100115
  Serious: Yes (Hospitalization)
  Sender: FDA-Public Use
  Company Number: PHEH2009US09384

PATIENT
  Sex: Female

DRUGS (3)
  1. TOBRAMYCIN [Suspect]
  2. ADVAIR HFA [Concomitant]
  3. SPIRIVA [Concomitant]

REACTIONS (2)
  - COUGH [None]
  - PNEUMONIA [None]
